FAERS Safety Report 7158621-1 (Version None)
Quarter: 2010Q4

REPORT INFORMATION
  Report Type: 
  Country: None (occurrence: None)
  Receive Date: 20101214
  Receipt Date: 20100827
  Transmission Date: 20110411
  Serious: No
  Sender: FDA-Public Use
  Company Number: US-ASTRAZENECA-2010SE27947

PATIENT
  Age: 922 Month
  Sex: Male
  Weight: 59.9 kg

DRUGS (12)
  1. CRESTOR [Suspect]
     Indication: BLOOD CHOLESTEROL INCREASED
     Route: 048
     Dates: start: 20091230
  2. CRESTOR [Suspect]
     Route: 048
  3. LISINOPRIL [Concomitant]
  4. METFORMIN [Concomitant]
  5. GLIPIZIDE [Concomitant]
  6. LASIX [Concomitant]
  7. PROSCAR [Concomitant]
  8. WARFARIN SODIUM [Concomitant]
  9. MAGNESIUM OXIDE [Concomitant]
  10. VIT D [Concomitant]
  11. COQ10 [Concomitant]
  12. ASPIRIN [Concomitant]

REACTIONS (4)
  - BODY TEMPERATURE INCREASED [None]
  - CHILLS [None]
  - INFLUENZA [None]
  - MUSCLE SPASMS [None]
